FAERS Safety Report 7743214-5 (Version None)
Quarter: 2011Q3

REPORT INFORMATION
  Report Type: 
  Country: None (occurrence: None)
  Receive Date: 20110912
  Receipt Date: 20110830
  Transmission Date: 20111222
  Serious: Yes (Other)
  Sender: FDA-Public Use
  Company Number: CA-ELI_LILLY_AND_COMPANY-CA201108008903

PATIENT
  Sex: Male

DRUGS (14)
  1. ZYPREXA [Suspect]
     Dosage: 2.5 MG, QD
  2. CLONAZEPAM [Concomitant]
  3. PERINDOPRIL ERBUMINE [Concomitant]
  4. ZYPREXA [Suspect]
     Dosage: 7.5 MG, QD
  5. ZYPREXA [Suspect]
     Dosage: 5 MG, QD
  6. RANITIDINE [Concomitant]
  7. PRILOSEC [Concomitant]
  8. ATIVAN [Concomitant]
  9. SERTRALINE HYDROCHLORIDE [Concomitant]
  10. TRAZODONE HCL [Concomitant]
  11. SUPEUDOL [Concomitant]
  12. PANTOLOC ^BYK MADAUS^ [Concomitant]
  13. NEXIUM [Concomitant]
  14. ETODOLAC [Concomitant]

REACTIONS (16)
  - PANCREATITIS [None]
  - GLOMERULAR FILTRATION RATE INCREASED [None]
  - OBESITY SURGERY [None]
  - COSTOCHONDRITIS [None]
  - ALANINE AMINOTRANSFERASE INCREASED [None]
  - WEIGHT INCREASED [None]
  - TYPE 2 DIABETES MELLITUS [None]
  - BRONCHITIS [None]
  - HYPERTENSION [None]
  - SLEEP APNOEA SYNDROME [None]
  - ASPARTATE AMINOTRANSFERASE INCREASED [None]
  - HEPATIC STEATOSIS [None]
  - METABOLIC SYNDROME [None]
  - DYSLIPIDAEMIA [None]
  - HEPATITIS B [None]
  - FURUNCLE [None]
